FAERS Safety Report 7003621-5 (Version None)
Quarter: 2010Q3

REPORT INFORMATION
  Report Type: 
  Country: None (occurrence: None)
  Receive Date: 20100920
  Receipt Date: 20100217
  Transmission Date: 20110219
  Serious: No
  Sender: FDA-Public Use
  Company Number: US-WYE-H07909809

PATIENT
  Sex: Male

DRUGS (4)
  1. PRISTIQ [Suspect]
     Indication: DEPRESSION
     Route: 048
     Dates: start: 20090119
  2. PRISTIQ [Suspect]
     Indication: GENERALISED ANXIETY DISORDER
  3. WELLBUTRIN [Concomitant]
  4. KLONOPIN [Concomitant]

REACTIONS (1)
  - NAUSEA [None]
